FAERS Safety Report 14575080 (Version 1)
Quarter: 2018Q1

REPORT INFORMATION
  Report Type: Spontaneous
  Country: US (occurrence: US)
  Receive Date: 20180227
  Receipt Date: 20180227
  Transmission Date: 20180509
  Serious: Yes (Other)
  Sender: FDA-Public Use
  Company Number: US-ROCHE-2012422

PATIENT

DRUGS (1)
  1. XOLAIR [Suspect]
     Active Substance: OMALIZUMAB
     Indication: CHRONIC SPONTANEOUS URTICARIA
     Route: 065
     Dates: start: 201708

REACTIONS (4)
  - Angioedema [Unknown]
  - Urticaria [Unknown]
  - Hypersensitivity [Unknown]
  - Arthralgia [Unknown]

NARRATIVE: CASE EVENT DATE: 201708
